FAERS Safety Report 7152196-9 (Version None)
Quarter: 2010Q4

REPORT INFORMATION
  Report Type: 
  Country: None (occurrence: None)
  Receive Date: 20101213
  Receipt Date: 20101203
  Transmission Date: 20110411
  Serious: No
  Sender: FDA-Public Use
  Company Number: US-BIOGENIDEC-2010BI038470

PATIENT
  Age: 57 Year
  Sex: Female

DRUGS (1)
  1. TYSABRI [Suspect]
     Indication: MULTIPLE SCLEROSIS
     Route: 042
     Dates: start: 20091016

REACTIONS (6)
  - BURSITIS [None]
  - HEADACHE [None]
  - JOINT EFFUSION [None]
  - MUSCULOSKELETAL PAIN [None]
  - TENDON DISORDER [None]
  - TENDONITIS [None]
